FAERS Safety Report 7275235-3 (Version None)
Quarter: 2011Q1

REPORT INFORMATION
  Report Type: 
  Country: None (occurrence: None)
  Receive Date: 20110204
  Receipt Date: 20110128
  Transmission Date: 20110831
  Serious: Yes (Other)
  Sender: FDA-Public Use
  Company Number: JP-ROCHE-730872

PATIENT
  Sex: Female

DRUGS (45)
  1. TOCILIZUMAB [Suspect]
     Route: 041
     Dates: start: 20100204, end: 20100401
  2. ALFAROL [Concomitant]
     Route: 048
     Dates: start: 20100123, end: 20100213
  3. PREDONINE [Concomitant]
     Route: 048
     Dates: start: 20091027, end: 20091109
  4. PREDONINE [Concomitant]
     Route: 048
     Dates: start: 20100318, end: 20100401
  5. PREDONINE [Concomitant]
     Route: 048
     Dates: start: 20110115
  6. METHOTREXATE [Concomitant]
     Route: 048
     Dates: start: 20091110
  7. TOCILIZUMAB [Suspect]
     Indication: JUVENILE ARTHRITIS
     Route: 041
     Dates: start: 20091214, end: 20091214
  8. TOCILIZUMAB [Suspect]
     Route: 041
     Dates: start: 20100917, end: 20100930
  9. ALFAROL [Concomitant]
     Route: 048
     Dates: start: 20100317, end: 20100609
  10. PREDONINE [Concomitant]
     Route: 048
     Dates: start: 20100428, end: 20100512
  11. PREDONINE [Concomitant]
     Route: 048
     Dates: start: 20100915, end: 20100917
  12. PREDONINE [Concomitant]
     Route: 048
     Dates: start: 20091110, end: 20091228
  13. PREDONINE [Concomitant]
     Route: 048
     Dates: start: 20100109, end: 20100121
  14. PREDONINE [Concomitant]
     Route: 048
     Dates: start: 20100122, end: 20100204
  15. PREDONINE [Concomitant]
     Route: 048
     Dates: start: 20100513, end: 20100527
  16. PREDONINE [Concomitant]
     Route: 048
     Dates: start: 20100528, end: 20100804
  17. METOLATE [Concomitant]
     Route: 048
     Dates: start: 20091007, end: 20091109
  18. PYRIDOXAL CALCIUM PHOSPHATE [Concomitant]
     Route: 048
     Dates: start: 20100317, end: 20100708
  19. TOCILIZUMAB [Suspect]
     Route: 041
     Dates: start: 20100427, end: 20100427
  20. TOCILIZUMAB [Suspect]
     Route: 041
     Dates: start: 20101018, end: 20101018
  21. TOCILIZUMAB [Suspect]
     Route: 041
     Dates: start: 20101101, end: 20110114
  22. IBRUPROFEN [Concomitant]
     Route: 048
     Dates: start: 20100123, end: 20100219
  23. GEFANIL [Concomitant]
     Dosage: FORM: PERORAL AGENT
     Route: 048
     Dates: start: 20091014
  24. CEFACLOR [Concomitant]
     Dosage: FORM: PERORAL AGENT
     Route: 048
     Dates: start: 20091215, end: 20091217
  25. TOCILIZUMAB [Suspect]
     Route: 041
     Dates: start: 20091228, end: 20100121
  26. PREDONINE [Concomitant]
     Route: 048
     Dates: start: 20091229, end: 20100108
  27. PREDONINE [Concomitant]
     Route: 048
     Dates: start: 20100402, end: 20100415
  28. DALACIN [Concomitant]
     Dosage: NOTE: PROPER QUANTITY
     Route: 003
     Dates: start: 20100109
  29. MEVALOTIN [Concomitant]
     Route: 048
     Dates: start: 20100303, end: 20100722
  30. TOCILIZUMAB [Suspect]
     Route: 041
     Dates: start: 20100415, end: 20100415
  31. TOCILIZUMAB [Suspect]
     Route: 041
     Dates: start: 20100804, end: 20100819
  32. PREDONINE [Concomitant]
     Route: 048
     Dates: start: 20100219, end: 20100303
  33. PREDONINE [Concomitant]
     Route: 048
     Dates: start: 20100314, end: 20100317
  34. PREDONINE [Concomitant]
     Route: 048
     Dates: start: 20100918, end: 20110114
  35. ISCOTIN [Concomitant]
     Route: 048
     Dates: start: 20091214, end: 20100624
  36. MINOMYCIN [Concomitant]
     Dosage: FOPRM: FORM: PERORAL AGENT
     Route: 048
     Dates: start: 20100109, end: 20100124
  37. MINOMYCIN [Concomitant]
     Route: 048
     Dates: start: 20100220, end: 20100303
  38. PREDONINE [Concomitant]
     Route: 048
     Dates: start: 20100805, end: 20100914
  39. DIFFERIN [Concomitant]
     Dosage: NOTE: PROPER QUANTITY
     Route: 003
     Dates: start: 20100109
  40. TOCILIZUMAB [Suspect]
     Route: 041
     Dates: start: 20100512, end: 20100708
  41. TOCILIZUMAB [Suspect]
     Route: 041
     Dates: start: 20100722, end: 20100722
  42. PREDONINE [Concomitant]
     Route: 048
     Dates: start: 20091014, end: 20091026
  43. PREDONINE [Concomitant]
     Route: 048
     Dates: start: 20100205, end: 20100218
  44. PREDONINE [Concomitant]
     Route: 048
     Dates: start: 20100416, end: 20100427
  45. IBRUPROFEN [Concomitant]
     Dosage: FORM: PERORAL AGENT
     Route: 048
     Dates: start: 20091007, end: 20100122

REACTIONS (3)
  - BLOOD BILIRUBIN INCREASED [None]
  - MELAENA [None]
  - ANAL HAEMORRHAGE [None]
